FAERS Safety Report 17839907 (Version 2)
Quarter: 2020Q2

REPORT INFORMATION
  Report Type: Spontaneous
  Country: US (occurrence: US)
  Receive Date: 20200529
  Receipt Date: 20200609
  Transmission Date: 20200714
  Serious: Yes (Life-Threatening, Hospitalization)
  Sender: FDA-Public Use
  Company Number: US-UCBSA-2020021035

PATIENT
  Sex: Male
  Weight: 88 kg

DRUGS (2)
  1. VIMPAT [Suspect]
     Active Substance: LACOSAMIDE
     Indication: EPILEPSY
     Dosage: 200 MILLIGRAM, 2X/DAY (BID)
     Route: 042
     Dates: start: 20180503
  2. LEVETIRACETAM. [Suspect]
     Active Substance: LEVETIRACETAM
     Indication: EPILEPSY
     Dosage: 2000 MILLIGRAM, 2X/DAY (BID)
     Route: 042
     Dates: start: 20170714

REACTIONS (3)
  - Prescribed overdose [Unknown]
  - Off label use [Unknown]
  - Pneumatosis [Unknown]

NARRATIVE: CASE EVENT DATE: 20170714
